FAERS Safety Report 18907953 (Version 3)
Quarter: 2021Q1

REPORT INFORMATION
  Report Type: Spontaneous
  Country: SK (occurrence: SK)
  Receive Date: 20210218
  Receipt Date: 20210316
  Transmission Date: 20210420
  Serious: Yes (Other)
  Sender: FDA-Public Use
  Company Number: SK-CELLTRION INC.-2021SK001937

PATIENT

DRUGS (4)
  1. RITUXIMAB (UNKNOWN) [Suspect]
     Active Substance: RITUXIMAB
     Indication: LYMPHOMA
  2. BENDAMUSTINE HYDROCHLORIDE. [Suspect]
     Active Substance: BENDAMUSTINE HYDROCHLORIDE
     Indication: LYMPHOMA
  3. RITUXIMAB (UNKNOWN) [Suspect]
     Active Substance: RITUXIMAB
     Indication: B-CELL LYMPHOMA
     Dosage: FOUR CYCLES OF COMBINED CHEMOTHERAPY AND BIOLOGIC TREATMENT /4 CYCLES
     Route: 065
     Dates: start: 201909, end: 201911
  4. BENDAMUSTINE HYDROCHLORIDE. [Suspect]
     Active Substance: BENDAMUSTINE HYDROCHLORIDE
     Indication: B-CELL LYMPHOMA
     Dosage: FOUR CYCLES OF COMBINED CHEMOTHERAPY AND BIOLOGIC TREATMENT /4 CYCLES
     Route: 065
     Dates: start: 201909, end: 201911

REACTIONS (4)
  - Paresis [Unknown]
  - Progressive multifocal leukoencephalopathy [Unknown]
  - Polyneuropathy [Unknown]
  - Nervous system disorder [Unknown]

NARRATIVE: CASE EVENT DATE: 202001
